FAERS Safety Report 9406481 (Version 1)
Quarter: 2013Q3

REPORT INFORMATION
  Report Type: Report from Study
  Country: CN (occurrence: CN)
  Receive Date: 20130718
  Receipt Date: 20130718
  Transmission Date: 20140515
  Serious: Yes (Other)
  Sender: FDA-Public Use
  Company Number: CN-ROCHE-1249847

PATIENT
  Age: 68 Year
  Sex: Female
  Weight: 75 kg

DRUGS (2)
  1. PEGASYS [Suspect]
     Indication: HEPATITIS C
     Route: 058
     Dates: start: 20121017, end: 201307
  2. PEGASYS [Suspect]
     Route: 058
     Dates: start: 201307

REACTIONS (6)
  - Weight increased [Unknown]
  - Anaemia [Unknown]
  - Hypothyroidism [Unknown]
  - Memory impairment [Unknown]
  - Hyperglycaemia [Unknown]
  - Alopecia [Unknown]
